FAERS Safety Report 8259472-7 (Version None)
Quarter: 2012Q2

REPORT INFORMATION
  Report Type: 
  Country: None (occurrence: None)
  Receive Date: 20120404
  Receipt Date: 20120328
  Transmission Date: 20120825
  Serious: Yes (Hospitalization, Other)
  Sender: FDA-Public Use
  Company Number: US-BRISTOL-MYERS SQUIBB COMPANY-15109697

PATIENT
  Age: 55 Year
  Sex: Female
  Weight: 53 kg

DRUGS (2)
  1. TAXOL [Suspect]
     Indication: NON-SMALL CELL LUNG CANCER
     Dosage: WEEKLY, 45MG/M2, RECENT DOSE 04MAY2010
     Dates: start: 20100427
  2. CARBOPLATIN [Suspect]
     Indication: NON-SMALL CELL LUNG CANCER
     Dosage: WEEKLY, AUC=2, RECENT DOSE 04MAY2010
     Dates: start: 20100427

REACTIONS (6)
  - VOMITING [None]
  - NAUSEA [None]
  - LYMPHOCYTE COUNT DECREASED [None]
  - HYPOKALAEMIA [None]
  - DEHYDRATION [None]
  - DIARRHOEA [None]
